FAERS Safety Report 9768042 (Version 5)
Quarter: 2014Q1

REPORT INFORMATION
  Report Type: Spontaneous
  Country: US (occurrence: US)
  Receive Date: 20131217
  Receipt Date: 20140325
  Transmission Date: 20141002
  Serious: Yes (Death)
  Sender: FDA-Public Use
  Company Number: US-PFIZER INC-2013358230

PATIENT
  Age: 66 Year
  Sex: Male

DRUGS (25)
  1. VFEND [Suspect]
     Indication: PNEUMONIA
     Dosage: 200 MG, 2X/DAY
     Route: 048
     Dates: start: 20130614
  2. VFEND [Suspect]
     Dosage: 200 MG, 2X/DAY (Q12H)
     Route: 048
     Dates: start: 20130610
  3. ACYCLOVIR [Concomitant]
     Dosage: 400 MG, 2X/DAY
  4. ACYCLOVIR [Concomitant]
     Dosage: 400 MG, 1X/DAY
     Route: 048
     Dates: start: 20130610
  5. PROVENTIL HFA [Concomitant]
     Dosage: 10 DF, EVERY 4 HRS (10 PUFF ENDOTRACHEAL Q4H)
  6. VASOLEX [Concomitant]
     Dosage: (1 APP TOPICAL BID)
  7. SYMBICORT [Concomitant]
     Dosage: 2 DF, 2X/DAY (2 PUFF INHALED); 160MCG-4.5 MCG
  8. INSULIN LISPRO [Concomitant]
     Dosage: UNK
     Route: 058
  9. ZOSYN [Concomitant]
     Dosage: 3.375 G, 4X/DAY
     Route: 042
  10. ZOSYN [Concomitant]
     Dosage: 2.25 G, 4X/DAY
     Route: 042
     Dates: start: 20130615
  11. MIRALAX [Concomitant]
     Dosage: 17 G, DAILY
     Route: 048
  12. POTASSIUM PHOSPHATE MONOBASIC/SODIUM PHOSPHATE [Concomitant]
     Dosage: 2 DF, 4X/DAY (2 PACKET OG-TUBE QID)
  13. PREDNISONE [Concomitant]
     Dosage: 40 MG, DAILY
     Route: 048
  14. PREDNISONE [Concomitant]
     Dosage: 30 MG, 1X/DAY
  15. SENNA [Concomitant]
     Dosage: 5 ML, 2X/DAY
     Route: 048
  16. LEVOPHED [Concomitant]
     Dosage: 4 MG, UNK
     Route: 042
  17. CIPROFLOXACIN [Concomitant]
     Dosage: 400 MG, 1X/DAY
     Route: 042
     Dates: start: 20130622
  18. FENTANYL [Concomitant]
     Dosage: UNK
  19. VERSED [Concomitant]
     Dosage: UNK
  20. PROTONIX [Concomitant]
     Dosage: 40 MG, DAILY
     Route: 048
  21. INSULIN [Concomitant]
     Dosage: UNK
  22. ALBUTEROL [Concomitant]
     Dosage: (10 PUFF ENDOTRACHEAL Q4H)
  23. RITUXIMAB [Concomitant]
     Dosage: UNK
  24. FLUCONAZOLE [Concomitant]
     Dosage: UNK
  25. BENDAMUSTINE [Concomitant]
     Dosage: UNK

REACTIONS (2)
  - Pulmonary alveolar haemorrhage [Fatal]
  - Thrombocytopenia [Fatal]
